FAERS Safety Report 8445387-8 (Version None)
Quarter: 2012Q2

REPORT INFORMATION
  Report Type: 
  Country: None (occurrence: None)
  Receive Date: 20120618
  Receipt Date: 20120608
  Transmission Date: 20120825
  Serious: Yes (Hospitalization)
  Sender: FDA-Public Use
  Company Number: FR-EISAI INC-E3810-05615-SPO-FR

PATIENT
  Age: 85 Year
  Sex: Female

DRUGS (13)
  1. IMOVANE [Concomitant]
     Route: 048
  2. TEMAZEPAM [Concomitant]
     Route: 048
  3. RABEPRAZOLE SODIUM [Suspect]
     Route: 048
     Dates: start: 20120523, end: 20120524
  4. RABEPRAZOLE SODIUM [Suspect]
     Route: 048
     Dates: start: 20120504, end: 20120519
  5. NEXIUM [Concomitant]
     Route: 048
  6. ASPIRIN [Concomitant]
     Route: 048
  7. MODOPAR [Concomitant]
     Route: 048
  8. ATARAX [Concomitant]
     Route: 048
  9. FERROUS FUMARATE [Concomitant]
     Route: 048
  10. IMODIUM [Concomitant]
     Route: 048
  11. DEXTROSE 5% [Concomitant]
  12. MEMANTINE HYDROCHLORIDE [Concomitant]
     Route: 048
  13. TRIVASTAL [Concomitant]
     Route: 048

REACTIONS (3)
  - ASPARTATE AMINOTRANSFERASE INCREASED [None]
  - RASH MACULO-PAPULAR [None]
  - EOSINOPHILIA [None]
